FAERS Safety Report 20997776 (Version 5)
Quarter: 2025Q1

REPORT INFORMATION
  Report Type: Spontaneous
  Country: CA (occurrence: CA)
  Receive Date: 20220623
  Receipt Date: 20250321
  Transmission Date: 20250408
  Serious: Yes (Other)
  Sender: ORGANON
  Company Number: CA-ORGANON-O2206CAN002033

PATIENT
  Age: 10 Year
  Sex: Male

DRUGS (74)
  1. SINGULAIR [Suspect]
     Active Substance: MONTELUKAST SODIUM
     Indication: Product used for unknown indication
     Route: 048
  2. CANCIDAS [Interacting]
     Active Substance: CASPOFUNGIN ACETATE
     Indication: Antifungal prophylaxis
     Route: 042
  3. CANCIDAS [Interacting]
     Active Substance: CASPOFUNGIN ACETATE
     Indication: Bronchopulmonary aspergillosis
  4. CANCIDAS [Interacting]
     Active Substance: CASPOFUNGIN ACETATE
     Indication: Fibrinous bronchitis
  5. CANCIDAS [Interacting]
     Active Substance: CASPOFUNGIN ACETATE
     Indication: Product used for unknown indication
  6. MYCOPHENOLATE MOFETIL [Suspect]
     Active Substance: MYCOPHENOLATE MOFETIL
     Indication: Prophylaxis against transplant rejection
     Route: 048
  7. MYCOPHENOLATE MOFETIL [Suspect]
     Active Substance: MYCOPHENOLATE MOFETIL
     Indication: Immunosuppressant drug therapy
     Route: 048
  8. MYCOPHENOLATE MOFETIL [Suspect]
     Active Substance: MYCOPHENOLATE MOFETIL
     Route: 048
  9. MYCOPHENOLATE MOFETIL [Suspect]
     Active Substance: MYCOPHENOLATE MOFETIL
     Route: 048
  10. MYCOPHENOLATE MOFETIL [Suspect]
     Active Substance: MYCOPHENOLATE MOFETIL
     Route: 048
  11. MYCOPHENOLATE MOFETIL [Suspect]
     Active Substance: MYCOPHENOLATE MOFETIL
     Route: 048
  12. NIFEDIPINE [Suspect]
     Active Substance: NIFEDIPINE
     Indication: Product used for unknown indication
     Route: 048
  13. NIFEDIPINE [Suspect]
     Active Substance: NIFEDIPINE
     Route: 048
  14. NIFEDIPINE [Suspect]
     Active Substance: NIFEDIPINE
     Route: 048
  15. PANTOPRAZOLE SODIUM ANHYDROUS [Interacting]
     Active Substance: PANTOPRAZOLE SODIUM ANHYDROUS
     Indication: Product used for unknown indication
     Route: 048
  16. PANTOPRAZOLE SODIUM ANHYDROUS [Interacting]
     Active Substance: PANTOPRAZOLE SODIUM ANHYDROUS
     Route: 048
  17. PANTOPRAZOLE SODIUM ANHYDROUS [Interacting]
     Active Substance: PANTOPRAZOLE SODIUM ANHYDROUS
     Route: 048
  18. PANTOPRAZOLE SODIUM ANHYDROUS [Interacting]
     Active Substance: PANTOPRAZOLE SODIUM ANHYDROUS
     Route: 042
  19. PANTOPRAZOLE SODIUM ANHYDROUS [Interacting]
     Active Substance: PANTOPRAZOLE SODIUM ANHYDROUS
     Route: 042
  20. PANTOPRAZOLE SODIUM ANHYDROUS [Interacting]
     Active Substance: PANTOPRAZOLE SODIUM ANHYDROUS
     Route: 042
  21. PREDNISONE [Suspect]
     Active Substance: PREDNISONE
     Indication: Prophylaxis against transplant rejection
     Route: 048
  22. PREDNISONE [Suspect]
     Active Substance: PREDNISONE
     Indication: Immunosuppressant drug therapy
     Route: 048
  23. PREDNISONE [Suspect]
     Active Substance: PREDNISONE
     Route: 048
  24. PREDNISONE [Suspect]
     Active Substance: PREDNISONE
     Route: 048
  25. PREDNISONE [Suspect]
     Active Substance: PREDNISONE
     Route: 048
  26. PREDNISONE [Suspect]
     Active Substance: PREDNISONE
     Route: 048
  27. TACROLIMUS [Suspect]
     Active Substance: TACROLIMUS
     Indication: Prophylaxis against transplant rejection
     Route: 048
  28. TACROLIMUS [Suspect]
     Active Substance: TACROLIMUS
     Indication: Immunosuppressant drug therapy
     Route: 048
  29. TACROLIMUS [Suspect]
     Active Substance: TACROLIMUS
     Route: 048
  30. TACROLIMUS [Suspect]
     Active Substance: TACROLIMUS
     Route: 048
  31. TACROLIMUS [Suspect]
     Active Substance: TACROLIMUS
     Route: 048
  32. TACROLIMUS [Suspect]
     Active Substance: TACROLIMUS
     Route: 048
  33. AZITHROMYCIN [Suspect]
     Active Substance: AZITHROMYCIN
     Indication: Product used for unknown indication
     Route: 048
  34. AZITHROMYCIN [Suspect]
     Active Substance: AZITHROMYCIN
     Route: 048
  35. AZITHROMYCIN [Suspect]
     Active Substance: AZITHROMYCIN
     Route: 048
  36. AZITHROMYCIN [Suspect]
     Active Substance: AZITHROMYCIN
     Route: 048
  37. AZITHROMYCIN [Suspect]
     Active Substance: AZITHROMYCIN
     Route: 048
  38. AZITHROMYCIN [Suspect]
     Active Substance: AZITHROMYCIN
     Route: 048
  39. AZITHROMYCIN [Suspect]
     Active Substance: AZITHROMYCIN
     Route: 048
  40. AZITHROMYCIN [Suspect]
     Active Substance: AZITHROMYCIN
     Route: 048
  41. AZITHROMYCIN [Suspect]
     Active Substance: AZITHROMYCIN
     Route: 048
  42. AZITHROMYCIN [Suspect]
     Active Substance: AZITHROMYCIN
     Route: 048
  43. AZITHROMYCIN [Suspect]
     Active Substance: AZITHROMYCIN
     Route: 048
  44. AZITHROMYCIN [Suspect]
     Active Substance: AZITHROMYCIN
     Route: 048
  45. CIPROFLOXACIN HYDROCHLORIDE [Suspect]
     Active Substance: CIPROFLOXACIN HYDROCHLORIDE
     Indication: Product used for unknown indication
     Route: 048
  46. CIPROFLOXACIN HYDROCHLORIDE [Suspect]
     Active Substance: CIPROFLOXACIN HYDROCHLORIDE
     Route: 048
  47. CIPROFLOXACIN HYDROCHLORIDE [Suspect]
     Active Substance: CIPROFLOXACIN HYDROCHLORIDE
     Route: 048
  48. CIPROFLOXACIN HYDROCHLORIDE [Suspect]
     Active Substance: CIPROFLOXACIN HYDROCHLORIDE
     Route: 048
  49. CIPROFLOXACIN HYDROCHLORIDE [Suspect]
     Active Substance: CIPROFLOXACIN HYDROCHLORIDE
     Route: 048
  50. SULFAMETHOXAZOLE\TRIMETHOPRIM [Suspect]
     Active Substance: SULFAMETHOXAZOLE\TRIMETHOPRIM
     Indication: Product used for unknown indication
     Route: 048
  51. SULFAMETHOXAZOLE\TRIMETHOPRIM [Suspect]
     Active Substance: SULFAMETHOXAZOLE\TRIMETHOPRIM
     Route: 048
  52. SULFAMETHOXAZOLE\TRIMETHOPRIM [Suspect]
     Active Substance: SULFAMETHOXAZOLE\TRIMETHOPRIM
     Route: 048
  53. SULFAMETHOXAZOLE\TRIMETHOPRIM [Suspect]
     Active Substance: SULFAMETHOXAZOLE\TRIMETHOPRIM
     Route: 048
  54. SULFAMETHOXAZOLE\TRIMETHOPRIM [Suspect]
     Active Substance: SULFAMETHOXAZOLE\TRIMETHOPRIM
     Route: 048
  55. SULFAMETHOXAZOLE\TRIMETHOPRIM [Suspect]
     Active Substance: SULFAMETHOXAZOLE\TRIMETHOPRIM
     Route: 048
  56. VORICONAZOLE [Suspect]
     Active Substance: VORICONAZOLE
     Indication: Fungal infection
     Route: 048
  57. VORICONAZOLE [Suspect]
     Active Substance: VORICONAZOLE
     Indication: Bronchopulmonary aspergillosis
     Route: 048
  58. VORICONAZOLE [Suspect]
     Active Substance: VORICONAZOLE
     Indication: Product used for unknown indication
     Route: 042
  59. VORICONAZOLE [Suspect]
     Active Substance: VORICONAZOLE
     Indication: Fibrinous bronchitis
     Route: 042
  60. VORICONAZOLE [Suspect]
     Active Substance: VORICONAZOLE
     Indication: Antifungal treatment
     Route: 042
  61. VORICONAZOLE [Suspect]
     Active Substance: VORICONAZOLE
     Route: 042
  62. VORICONAZOLE [Suspect]
     Active Substance: VORICONAZOLE
     Route: 065
  63. VORICONAZOLE [Suspect]
     Active Substance: VORICONAZOLE
     Route: 048
  64. PENTAMIDINE MESYLATE [Suspect]
     Active Substance: PENTAMIDINE MESYLATE
     Indication: Product used for unknown indication
     Route: 065
  65. SULFATRIM [Suspect]
     Active Substance: SULFAMETHOXAZOLE\TRIMETHOPRIM
     Indication: Product used for unknown indication
     Route: 048
  66. SULFATRIM [Suspect]
     Active Substance: SULFAMETHOXAZOLE\TRIMETHOPRIM
     Route: 048
  67. SULFATRIM [Suspect]
     Active Substance: SULFAMETHOXAZOLE\TRIMETHOPRIM
     Route: 048
  68. SULFATRIM [Suspect]
     Active Substance: SULFAMETHOXAZOLE\TRIMETHOPRIM
     Route: 048
  69. SULFADIAZINE\TRIMETHOPRIM [Suspect]
     Active Substance: SULFADIAZINE\TRIMETHOPRIM
     Indication: Product used for unknown indication
     Route: 048
  70. SULFADIAZINE\TRIMETHOPRIM [Suspect]
     Active Substance: SULFADIAZINE\TRIMETHOPRIM
     Route: 048
  71. SULFADIAZINE\TRIMETHOPRIM [Suspect]
     Active Substance: SULFADIAZINE\TRIMETHOPRIM
     Route: 048
  72. SULFADIAZINE\TRIMETHOPRIM [Suspect]
     Active Substance: SULFADIAZINE\TRIMETHOPRIM
     Route: 048
  73. AMPHOTERICIN B [Concomitant]
     Active Substance: AMPHOTERICIN B
     Indication: Bronchopulmonary aspergillosis
     Route: 065
  74. AMPHOTERICIN B [Concomitant]
     Active Substance: AMPHOTERICIN B
     Indication: Fibrinous bronchitis

REACTIONS (18)
  - Actinic keratosis [Not Recovered/Not Resolved]
  - Dysplastic naevus [Not Recovered/Not Resolved]
  - Photodermatosis [Not Recovered/Not Resolved]
  - Photosensitivity reaction [Not Recovered/Not Resolved]
  - Solar lentigo [Not Recovered/Not Resolved]
  - Squamous cell carcinoma of skin [Not Recovered/Not Resolved]
  - Drug level increased [Not Recovered/Not Resolved]
  - Drug interaction [Not Recovered/Not Resolved]
  - Macule [Unknown]
  - Blister [Unknown]
  - Sunburn [Unknown]
  - Scab [Unknown]
  - Skin mass [Unknown]
  - Erythema [Unknown]
  - Photoonycholysis [Unknown]
  - Nail discolouration [Unknown]
  - Lip blister [Unknown]
  - Fungal infection [Recovered/Resolved]
